FAERS Safety Report 8812903 (Version 1)
Quarter: 2012Q4

REPORT INFORMATION
  Report Type: 
  Country: GB (occurrence: GB)
  Receive Date: 20120927
  Receipt Date: 20120927
  Transmission Date: 20130627
  Serious: Yes (Other)
  Sender: FDA-Public Use
  Company Number: GB-ROCHE-1130377

PATIENT
  Sex: Female

DRUGS (3)
  1. RIVOTRIL [Suspect]
     Indication: PARKINSON^S DISEASE
     Route: 065
  2. APOMORPHINE [Concomitant]
     Indication: PARKINSON^S DISEASE
  3. LEVODOPA [Concomitant]

REACTIONS (1)
  - Muscle spasms [Unknown]
